FAERS Safety Report 23741894 (Version 1)
Quarter: 2024Q2

REPORT INFORMATION
  Report Type: Spontaneous
  Country: AU (occurrence: AU)
  Receive Date: 20240415
  Receipt Date: 20240415
  Transmission Date: 20240715
  Serious: Yes (Other)
  Sender: FDA-Public Use
  Company Number: AU-BRISTOL-MYERS SQUIBB COMPANY-2024-054970

PATIENT
  Sex: Male

DRUGS (20)
  1. REVLIMID [Suspect]
     Active Substance: LENALIDOMIDE
     Indication: Neoplasm
     Dates: start: 2010
  2. CARMUSTINE [Suspect]
     Active Substance: CARMUSTINE
     Indication: Neoplasm
     Dates: start: 2019
  3. CYCLOPHOSPHAMIDE [Suspect]
     Active Substance: CYCLOPHOSPHAMIDE
     Indication: Neoplasm
     Dates: start: 2006
  4. CYCLOPHOSPHAMIDE [Suspect]
     Active Substance: CYCLOPHOSPHAMIDE
     Dates: start: 2010
  5. CYCLOPHOSPHAMIDE [Suspect]
     Active Substance: CYCLOPHOSPHAMIDE
     Dates: start: 2019
  6. CYTARABINE [Suspect]
     Active Substance: CYTARABINE
     Indication: Neoplasm
     Dates: start: 2019
  7. DOXORUBICIN HYDROCHLORIDE [Suspect]
     Active Substance: DOXORUBICIN HYDROCHLORIDE
     Indication: Neoplasm
     Dates: start: 2010
  8. ETOPOSIDE [Suspect]
     Active Substance: ETOPOSIDE
     Indication: Neoplasm
     Dates: start: 2019
  9. FLUDARABINE PHOSPHATE [Suspect]
     Active Substance: FLUDARABINE PHOSPHATE
     Indication: Neoplasm
     Dates: start: 2023
  10. MELPHALAN [Suspect]
     Active Substance: MELPHALAN
     Indication: Neoplasm
     Dates: start: 2019
  11. PREDNISONE [Suspect]
     Active Substance: PREDNISONE
     Indication: Neoplasm
  12. PREDNISONE [Suspect]
     Active Substance: PREDNISONE
  13. RITUXIMAB [Suspect]
     Active Substance: RITUXIMAB
     Indication: Neoplasm
     Dates: start: 2004
  14. RITUXIMAB [Suspect]
     Active Substance: RITUXIMAB
     Dates: start: 2006
  15. RITUXIMAB [Suspect]
     Active Substance: RITUXIMAB
     Dates: start: 2010
  16. RITUXIMAB [Suspect]
     Active Substance: RITUXIMAB
     Dates: start: 2019
  17. VINCRISTINE SULFATE [Suspect]
     Active Substance: VINCRISTINE SULFATE
     Indication: Neoplasm
     Dates: start: 2006
  18. VINCRISTINE SULFATE [Suspect]
     Active Substance: VINCRISTINE SULFATE
     Dates: start: 2010
  19. VINCRISTINE SULFATE [Suspect]
     Active Substance: VINCRISTINE SULFATE
     Dates: start: 2019
  20. EPIRUBICIN [Concomitant]
     Active Substance: EPIRUBICIN
     Indication: Product used for unknown indication

REACTIONS (1)
  - Hodgkin^s disease recurrent [Unknown]
